FAERS Safety Report 25884903 (Version 1)
Quarter: 2025Q4

REPORT INFORMATION
  Report Type: Spontaneous
  Country: US (occurrence: None)
  Receive Date: 20251003
  Receipt Date: 20251003
  Transmission Date: 20260117
  Serious: Yes (Other)
  Sender: FDA-CTU
  Company Number: None

PATIENT
  Age: 61 Year
  Sex: Female
  Weight: 59.42 kg

DRUGS (3)
  1. CUTAQUIG [Suspect]
     Active Substance: HUMAN IMMUNOGLOBULIN G
     Indication: Primary immunodeficiency syndrome
     Dosage: FREQUENCY : WEEKLY;?
     Route: 058
     Dates: start: 20250404, end: 20251001
  2. CUTAQUIG [Suspect]
     Active Substance: HUMAN IMMUNOGLOBULIN G
     Indication: Fatigue
  3. CUTAQUIG [Suspect]
     Active Substance: HUMAN IMMUNOGLOBULIN G
     Indication: Infection

REACTIONS (13)
  - Infusion related reaction [None]
  - Application site rash [None]
  - Dermatitis [None]
  - Food allergy [None]
  - Hypersensitivity [None]
  - Oral blood blister [None]
  - Oropharyngeal pain [None]
  - Increased upper airway secretion [None]
  - Face oedema [None]
  - Localised oedema [None]
  - Vision blurred [None]
  - Ear pain [None]
  - Chest discomfort [None]

NARRATIVE: CASE EVENT DATE: 20250913
